FAERS Safety Report 9720917 (Version 1)
Quarter: 2013Q4

REPORT INFORMATION
  Report Type: Spontaneous
  Country: JP (occurrence: JP)
  Receive Date: 20131129
  Receipt Date: 20131129
  Transmission Date: 20140711
  Serious: Yes (Other)
  Sender: FDA-Public Use
  Company Number: PHHY2013JP135075

PATIENT
  Age: 68 Year
  Sex: Female

DRUGS (2)
  1. CARBOPLATIN [Suspect]
     Indication: NEUROENDOCRINE CARCINOMA
     Dosage: 364 MG, AUC=5
  2. ETOPOSIDE [Suspect]
     Indication: NEUROENDOCRINE CARCINOMA
     Dosage: 128 MG, 80 MG/M^2, DAYS 1-3

REACTIONS (12)
  - Paraneoplastic neurological syndrome [Unknown]
  - Respiratory failure [Unknown]
  - Fatigue [Unknown]
  - Hypercapnia [Unknown]
  - Hypotonia [Unknown]
  - Areflexia [Unknown]
  - Respiratory paralysis [Recovering/Resolving]
  - Loss of consciousness [Unknown]
  - Cerebral infarction [Unknown]
  - Neutropenia [Unknown]
  - Leukopenia [Unknown]
  - Thrombocytopenia [Unknown]
